FAERS Safety Report 13038505 (Version 1)
Quarter: 2016Q4

REPORT INFORMATION
  Report Type: Spontaneous
  Country: US (occurrence: US)
  Receive Date: 20161219
  Receipt Date: 20161219
  Transmission Date: 20170207
  Serious: No
  Sender: FDA-Public Use
  Company Number: US-AUROBINDO-AUR-APL-2016-03854

PATIENT
  Age: 45 Year
  Sex: Male
  Weight: 110.2 kg

DRUGS (1)
  1. SERTRALINE ORAL CONCENTRATE [Suspect]
     Active Substance: SERTRALINE HYDROCHLORIDE
     Indication: OBSESSIVE-COMPULSIVE DISORDER
     Dosage: 2 ML, ONCE A DAY
     Route: 048
     Dates: start: 20160307, end: 20160312

REACTIONS (2)
  - Chest pain [Recovered/Resolved]
  - Dysgeusia [Recovered/Resolved]
